FAERS Safety Report 9229075 (Version 1)
Quarter: 2013Q2

REPORT INFORMATION
  Report Type: Spontaneous
  Country: DE (occurrence: DE)
  Receive Date: 20130412
  Receipt Date: 20130412
  Transmission Date: 20140414
  Serious: Yes (Death)
  Sender: FDA-Public Use
  Company Number: DE-ASTRAZENECA-2013SE22774

PATIENT
  Age: 12 Year
  Sex: Male

DRUGS (3)
  1. PROPOFOLE [Suspect]
     Route: 042
  2. VALPROIC ACID [Suspect]
     Indication: EPILEPSY
  3. VALPROIC ACID [Suspect]
     Indication: STATUS EPILEPTICUS

REACTIONS (1)
  - Hepatic failure [Fatal]
